FAERS Safety Report 23037581 (Version 1)
Quarter: 2023Q4

REPORT INFORMATION
  Report Type: Spontaneous
  Country: US (occurrence: None)
  Receive Date: 20231004
  Receipt Date: 20231004
  Transmission Date: 20240109
  Serious: Yes (Hospitalization)
  Sender: FDA-Public Use
  Company Number: None

PATIENT
  Age: 72 Year
  Sex: Male

DRUGS (1)
  1. TALTZ [Suspect]
     Active Substance: IXEKIZUMAB
     Indication: Psoriasis
     Dosage: 80MG/ML EVERY 4 WEEKS SUBCUTANEOUS
     Route: 058
     Dates: start: 202011

REACTIONS (3)
  - Coronary artery bypass [None]
  - Therapy interrupted [None]
  - Pruritus [None]

NARRATIVE: CASE EVENT DATE: 20230901
